FAERS Safety Report 10986676 (Version 1)
Quarter: 2015Q1

REPORT INFORMATION
  Report Type: Spontaneous
  Country: US (occurrence: None)
  Receive Date: 20150303
  Receipt Date: 20150303
  Transmission Date: 20150721
  Serious: Yes (Other)
  Sender: FDA-Public Use
  Company Number: DSU-2014-120600

PATIENT
  Age: 77 Year
  Sex: Female
  Weight: 55.8 kg

DRUGS (3)
  1. EVOXAC [Suspect]
     Active Substance: CEVIMELINE HYDROCHLORIDE
     Indication: SJOGREN^S SYNDROME
     Route: 048
     Dates: start: 2013
  2. EVOXAC [Suspect]
     Active Substance: CEVIMELINE HYDROCHLORIDE
     Indication: SJOGREN^S SYNDROME
     Route: 048
     Dates: end: 2013
  3. EYE DROPS (TETRYZOLINE HYDROCHLORIDE) [Concomitant]

REACTIONS (3)
  - Hypertension [None]
  - Drug administration error [None]
  - Erythema [None]

NARRATIVE: CASE EVENT DATE: 2013
